FAERS Safety Report 9632061 (Version 2)
Quarter: 2013Q4

REPORT INFORMATION
  Report Type: Report from Study
  Country: DE (occurrence: DE)
  Receive Date: 20131018
  Receipt Date: 20131018
  Transmission Date: 20140711
  Serious: Yes (Other)
  Sender: FDA-Public Use
  Company Number: DE-ABBVIE-13P-062-1105167-00

PATIENT
  Age: 55 Year
  Sex: Male
  Weight: 86 kg

DRUGS (10)
  1. HUMIRA [Suspect]
     Indication: RHEUMATOID ARTHRITIS
     Route: 058
     Dates: start: 201210
  2. SULFASALAZINE [Suspect]
     Indication: RHEUMATOID ARTHRITIS
     Dosage: 2 G DAILY
     Dates: start: 201302
  3. ARAVA [Concomitant]
     Indication: RHEUMATOID ARTHRITIS
     Dosage: 20 MG DAILY
  4. DECORTIN [Concomitant]
     Indication: RHEUMATOID ARTHRITIS
     Dosage: 5 MG DAILY
     Dates: end: 201305
  5. DECORTIN [Concomitant]
     Dosage: 7.5 MG DAILY
     Dates: start: 201305
  6. DECORTIN [Concomitant]
     Dosage: 2.5 MG DAILY
     Dates: start: 20130829
  7. IDEOS [Concomitant]
     Indication: PRODUCT USED FOR UNKNOWN INDICATION
     Dates: start: 20130129
  8. VIGANTOLETTEN [Concomitant]
     Indication: PRODUCT USED FOR UNKNOWN INDICATION
  9. DOXYCYCLINE [Concomitant]
     Indication: PRODUCT USED FOR UNKNOWN INDICATION
     Dosage: 200 MG DAILY
     Dates: start: 201307
  10. CALCIUM D SANDOZ [Concomitant]
     Indication: PRODUCT USED FOR UNKNOWN INDICATION

REACTIONS (7)
  - Hepatic fibrosis [Not Recovered/Not Resolved]
  - Lip swelling [Recovered/Resolved]
  - Henoch-Schonlein purpura [Recovered/Resolved]
  - Infection [Recovered/Resolved]
  - Hepatic cirrhosis [Not Recovered/Not Resolved]
  - Infection [Unknown]
  - Infection susceptibility increased [Unknown]
